FAERS Safety Report 8113160-6 (Version None)
Quarter: 2012Q1

REPORT INFORMATION
  Report Type: 
  Country: None (occurrence: None)
  Receive Date: 20120203
  Receipt Date: 20120124
  Transmission Date: 20120608
  Serious: Yes (Hospitalization, Other)
  Sender: FDA-Public Use
  Company Number: DE-BAXTER-2011BH038539

PATIENT
  Age: 42 Year
  Sex: Male

DRUGS (19)
  1. SODIUM CHLORIDE 0.9% IN PLASTIC CONTAINER [Suspect]
     Route: 042
  2. VITAMIN B-12 [Suspect]
     Indication: PRODUCT USED FOR UNKNOWN INDICATION
     Route: 065
     Dates: start: 20100705
  3. AMINOFUSIN HEPAR [Suspect]
     Indication: IMMUNODEFICIENCY
     Route: 042
     Dates: start: 20100705
  4. AMINOFUSIN HEPAR [Suspect]
     Indication: LARYNGITIS
     Route: 042
     Dates: start: 20100705
  5. MAGNESIUM SULFATE [Suspect]
     Indication: PRODUCT USED FOR UNKNOWN INDICATION
     Route: 065
     Dates: start: 20100705
  6. ASCORBIC ACID [Suspect]
     Indication: PRODUCT USED FOR UNKNOWN INDICATION
     Route: 065
     Dates: start: 20100705
  7. SODIUM CHLORIDE 0.9% IN PLASTIC CONTAINER [Suspect]
     Indication: CHRONIC FATIGUE SYNDROME
     Route: 042
     Dates: start: 20100705
  8. SODIUM CHLORIDE 0.9% IN PLASTIC CONTAINER [Suspect]
     Indication: LARYNGITIS
     Route: 042
     Dates: start: 20100705
  9. DEXPANTHENOL [Suspect]
     Indication: PRODUCT USED FOR UNKNOWN INDICATION
     Route: 065
     Dates: start: 20100705
  10. AMINOFUSIN HEPAR [Suspect]
     Route: 042
  11. AMINOFUSIN HEPAR [Suspect]
     Route: 042
  12. AMINOFUSIN HEPAR [Suspect]
     Route: 042
  13. VITAMIN B6 [Suspect]
     Indication: PRODUCT USED FOR UNKNOWN INDICATION
     Route: 065
     Dates: start: 20100705
  14. AMINOFUSIN HEPAR [Suspect]
     Indication: CHRONIC FATIGUE SYNDROME
     Route: 042
     Dates: start: 20100705
  15. CALCIUM [Suspect]
     Indication: PRODUCT USED FOR UNKNOWN INDICATION
     Route: 065
     Dates: start: 20100705
  16. SODIUM CHLORIDE 0.9% IN PLASTIC CONTAINER [Suspect]
     Route: 042
  17. MULTI-VITAMINS [Suspect]
     Indication: PRODUCT USED FOR UNKNOWN INDICATION
     Route: 065
     Dates: start: 20100705
  18. SODIUM CHLORIDE 0.9% IN PLASTIC CONTAINER [Suspect]
     Indication: IMMUNODEFICIENCY
     Route: 042
     Dates: start: 20100705
  19. SODIUM CHLORIDE 0.9% IN PLASTIC CONTAINER [Suspect]
     Route: 042

REACTIONS (2)
  - SEPSIS [None]
  - ACINETOBACTER TEST POSITIVE [None]
